FAERS Safety Report 6864037-5 (Version None)
Quarter: 2010Q3

REPORT INFORMATION
  Report Type: 
  Country: None (occurrence: None)
  Receive Date: 20100721
  Receipt Date: 20080514
  Transmission Date: 20110219
  Serious: No
  Sender: FDA-Public Use
  Company Number: US-PFIZER INC-2008022818

PATIENT
  Sex: Female
  Weight: 70.31 kg

DRUGS (1)
  1. CHANTIX [Suspect]
     Indication: SMOKING CESSATION THERAPY
     Dates: start: 20080304, end: 20080311

REACTIONS (4)
  - AGITATION [None]
  - INSOMNIA [None]
  - SLEEP DISORDER [None]
  - TINNITUS [None]
